FAERS Safety Report 7623489-3 (Version None)
Quarter: 2011Q3

REPORT INFORMATION
  Report Type: 
  Country: None (occurrence: None)
  Receive Date: 20110720
  Receipt Date: 20110713
  Transmission Date: 20111222
  Serious: Yes (Hospitalization, Other)
  Sender: FDA-Public Use
  Company Number: GXKR2011DE02276

PATIENT
  Age: 77 Year
  Sex: Female
  Weight: 62 kg

DRUGS (11)
  1. FALITHROM [Suspect]
     Indication: THROMBOSIS PROPHYLAXIS
     Dosage: 3 MG, QD (CORRESP. TO INR)
     Route: 048
     Dates: start: 20101029, end: 20110523
  2. MULTAQ [Suspect]
     Dosage: BREAK
     Dates: start: 20101223, end: 20110114
  3. L-THYROXIN-NATRIUM [Concomitant]
     Dosage: 75 UG/DAY
     Route: 048
     Dates: start: 20080124
  4. BISOPROLOL [Concomitant]
     Dosage: BREAK
     Dates: start: 20110210, end: 20110509
  5. L-THYROXIN-NATRIUM [Concomitant]
     Dosage: 50 UG/DAY
     Route: 048
     Dates: start: 20060127, end: 20080123
  6. MULTAQ [Suspect]
     Dosage: 1-2X1DF/DAY
     Route: 048
     Dates: start: 20101216, end: 20101222
  7. BISOPROLOL [Concomitant]
     Dosage: UNK
     Dates: start: 20110510
  8. MULTAQ [Suspect]
     Dosage: 1-2X1DF/DAY
     Dates: start: 20110115, end: 20110420
  9. RAMIPRIL [Concomitant]
     Dosage: 5 MG, QD
     Route: 048
     Dates: start: 20101110
  10. SIMVASTATIN [Suspect]
     Dosage: 10-20 MG/DAY
     Route: 048
     Dates: start: 20101018, end: 20110523
  11. BISOPROLOL [Concomitant]
     Dosage: 2.5-7.5 MG DAILY
     Route: 048
     Dates: start: 20070702, end: 20110209

REACTIONS (2)
  - HEPATIC FAILURE [None]
  - HEPATITIS ACUTE [None]
